FAERS Safety Report 4973882-2 (Version None)
Quarter: 2006Q2

REPORT INFORMATION
  Report Type: 
  Country: None (occurrence: None)
  Receive Date: 20060410
  Receipt Date: 20060403
  Transmission Date: 20061013
  Serious: Yes (Other)
  Sender: FDA-Public Use
  Company Number: 200610153BCC

PATIENT
  Age: 76 Year
  Sex: Female
  Weight: 113.3993 kg

DRUGS (12)
  1. ALEVE [Suspect]
     Indication: ARTHRALGIA
     Dosage: 800 MG TOTAL DAILY ORAL ; 660 MG TOTAL DAILY ORAL
     Route: 048
     Dates: start: 19950101, end: 20050608
  2. ALEVE [Suspect]
     Indication: BACK PAIN
     Dosage: 800 MG TOTAL DAILY ORAL ; 660 MG TOTAL DAILY ORAL
     Route: 048
     Dates: start: 19950101, end: 20050608
  3. ACETYLSALICYLIC ACID SRT [Suspect]
     Indication: CARDIOVASCULAR EVENT PROPHYLAXIS
     Dosage: 325 MG QD ORAL
     Route: 048
  4. ZOCOR [Concomitant]
  5. TRIAMTERENE [Concomitant]
  6. ATENOLOL [Concomitant]
  7. FLOVENT [Concomitant]
  8. ALBUTEROL [Concomitant]
  9. FORADIL [Concomitant]
  10. MULTIVITAMIN SUPPLEMENT [Concomitant]
  11. VITAMIN E SUPPLEMENT [Concomitant]
  12. NEXIUM [Concomitant]

REACTIONS (4)
  - PROTEIN URINE [None]
  - RENAL ATROPHY [None]
  - RENAL DISORDER [None]
  - SCAR [None]
